FAERS Safety Report 9486326 (Version 1)
Quarter: 2013Q3

REPORT INFORMATION
  Report Type: Spontaneous
  Country: US (occurrence: None)
  Receive Date: 20130827
  Receipt Date: 20130827
  Transmission Date: 20140515
  Serious: Yes (Life-Threatening, Hospitalization, Other)
  Sender: FDA-Public Use
  Company Number: None

PATIENT
  Age: 64 Year
  Sex: Female
  Weight: 61.24 kg

DRUGS (8)
  1. SUPREP BOWEL PREP KIT [Suspect]
     Indication: COLONOSCOPY
     Dosage: 12 OUNCES TWICE DAILY TAKEN BY MOUTH
     Route: 048
     Dates: start: 20130820, end: 20130820
  2. PRAVASTATIN [Concomitant]
  3. AZELASTINE NASAL SPRAY [Concomitant]
  4. PANTOPRAZOLE [Concomitant]
  5. CALCIUM CITRATE [Concomitant]
  6. D3 [Concomitant]
  7. L-LYSINE [Concomitant]
  8. COQ10 [Concomitant]

REACTIONS (3)
  - Visual impairment [None]
  - Vomiting [None]
  - Partial seizures [None]
